FAERS Safety Report 21947317 (Version 1)
Quarter: 2023Q1

REPORT INFORMATION
  Report Type: Spontaneous
  Country: CO (occurrence: CO)
  Receive Date: 20230202
  Receipt Date: 20230202
  Transmission Date: 20230418
  Serious: Yes (Other)
  Sender: FDA-Public Use
  Company Number: CO-SA-2023SA034627

PATIENT
  Age: 22 Year
  Sex: Female

DRUGS (1)
  1. VIGABATRIN [Suspect]
     Active Substance: VIGABATRIN
     Indication: Juvenile myoclonic epilepsy
     Dosage: MAXIMUM DOSE
     Route: 065

REACTIONS (4)
  - Seizure [Unknown]
  - Condition aggravated [Unknown]
  - Drug intolerance [Unknown]
  - Exposure during pregnancy [Unknown]
